FAERS Safety Report 4609635-4 (Version None)
Quarter: 2005Q1

REPORT INFORMATION
  Report Type: 
  Country: None (occurrence: None)
  Receive Date: 20050316
  Receipt Date: 20050228
  Transmission Date: 20050727
  Serious: Yes (Hospitalization)
  Sender: FDA-Public Use
  Company Number: 200510705JP

PATIENT
  Age: 56 Year
  Sex: Female

DRUGS (11)
  1. ARAVA [Suspect]
     Indication: MUSCULOSKELETAL PAIN
     Dosage: DOSE: 10 MG EVERY OTHER DAY
     Route: 048
     Dates: start: 20031001
  2. PREDONINE [Concomitant]
     Dosage: DOSE: 1 TABLET X2
     Route: 048
  3. LOXONIN [Concomitant]
     Dosage: DOSE: 3 TABLES X 3
     Route: 048
  4. SELBEX [Concomitant]
     Dosage: DOSE: 3 CAPSULES X3
     Route: 048
  5. MYONAL [Concomitant]
     Dosage: DOSE: 3 TABLETS X3
     Route: 048
  6. DEPAS [Concomitant]
     Dosage: DOSE: 2 TABLETS X 2
     Route: 048
  7. ONE-ALPHA [Concomitant]
     Dosage: DOSE: 2 TABLETS X 1
     Route: 048
  8. ULCERLMIN [Concomitant]
     Dosage: DOSE: 3 PACKS X 3
     Route: 048
  9. URSO 250 [Concomitant]
     Dosage: DOSE: 3 TABLES X3
     Route: 048
  10. ASPARA-CA [Concomitant]
     Dosage: DOSE: 2 TABLETS X2
     Route: 048
  11. VOLTAREN [Concomitant]
     Dosage: DOSE: 2 X 2

REACTIONS (5)
  - ALANINE AMINOTRANSFERASE INCREASED [None]
  - ASPARTATE AMINOTRANSFERASE INCREASED [None]
  - HEPATIC FUNCTION ABNORMAL [None]
  - LABORATORY TEST ABNORMAL [None]
  - LIVER DISORDER [None]
